FAERS Safety Report 6386094-5 (Version None)
Quarter: 2009Q4

REPORT INFORMATION
  Report Type: 
  Country: None (occurrence: None)
  Receive Date: 20091002
  Receipt Date: 20090210
  Transmission Date: 20100525
  Serious: Yes (Hospitalization)
  Sender: FDA-Public Use
  Company Number: US-ASTRAZENECA-2008UW28047

PATIENT
  Age: 63 Year
  Sex: Female
  Weight: 74.8 kg

DRUGS (10)
  1. ARIMIDEX [Suspect]
     Indication: BREAST CANCER
     Route: 048
     Dates: start: 20040101
  2. PLAVIX [Concomitant]
  3. LEXAPRO [Concomitant]
  4. HYDROCODONE [Concomitant]
     Indication: PAIN
  5. SIMVASTATIN [Concomitant]
  6. NITROGLYCERIN [Concomitant]
  7. LISINOPRIL [Concomitant]
  8. METOPROLOL [Concomitant]
  9. ADVAIR DISKUS 100/50 [Concomitant]
  10. AMITRIPTYLINE [Concomitant]

REACTIONS (2)
  - CEREBROVASCULAR ACCIDENT [None]
  - MYOCARDIAL INFARCTION [None]
